FAERS Safety Report 25185385 (Version 1)
Quarter: 2025Q2

REPORT INFORMATION
  Report Type: Spontaneous
  Country: US (occurrence: None)
  Receive Date: 20250410
  Receipt Date: 20250410
  Transmission Date: 20250717
  Serious: No
  Sender: FDA-CTU
  Company Number: None

PATIENT
  Sex: Female

DRUGS (1)
  1. XYWAV [Suspect]
     Active Substance: CALCIUM OXYBATE\MAGNESIUM OXYBATE\POTASSIUM OXYBATE\SODIUM OXYBATE
     Indication: Narcolepsy
     Dosage: OTHER QUANTITY : 3.5 GRAMS;?FREQUENCY : AT BEDTIME;?
     Route: 048
     Dates: start: 20240815, end: 20250402

REACTIONS (2)
  - Irritable bowel syndrome [None]
  - Reaction to excipient [None]
